FAERS Safety Report 5653427-4 (Version None)
Quarter: 2008Q1

REPORT INFORMATION
  Report Type: 
  Country: None (occurrence: None)
  Receive Date: 20080306
  Receipt Date: 20080303
  Transmission Date: 20080703
  Serious: Yes (Hospitalization)
  Sender: FDA-Public Use
  Company Number: B0504740A

PATIENT
  Age: 9 Year
  Sex: Male
  Weight: 13.7 kg

DRUGS (5)
  1. MODACIN [Suspect]
     Indication: PERITONITIS
     Dosage: .5MG THREE TIMES PER DAY
     Route: 042
     Dates: start: 20080101, end: 20080115
  2. MEROPEN [Concomitant]
     Indication: PERITONITIS
     Dosage: 1G PER DAY
     Route: 042
     Dates: start: 20071222, end: 20080101
  3. PERITONEAL DIALYSIS [Concomitant]
  4. MEROPEN [Concomitant]
     Dosage: .5G PER DAY
     Route: 033
     Dates: start: 20080103, end: 20080110
  5. UNKNOWN [Concomitant]
     Indication: PERITONITIS
     Dosage: 1G PER DAY
     Route: 042
     Dates: start: 20071221, end: 20071225

REACTIONS (9)
  - DEPRESSED LEVEL OF CONSCIOUSNESS [None]
  - DRUG LEVEL INCREASED [None]
  - DYSKINESIA [None]
  - ELECTROENCEPHALOGRAM ABNORMAL [None]
  - ENCEPHALOPATHY [None]
  - FEELING JITTERY [None]
  - SOMNOLENCE [None]
  - TREMOR [None]
  - UNRESPONSIVE TO STIMULI [None]
